FAERS Safety Report 9303237 (Version 3)
Quarter: 2013Q3

REPORT INFORMATION
  Report Type: Report from Study
  Country: US (occurrence: US)
  Receive Date: 20130522
  Receipt Date: 20130703
  Transmission Date: 20140515
  Serious: Yes (Death, Hospitalization)
  Sender: FDA-Public Use
  Company Number: US-ACTELION-A-NJ2013-83429

PATIENT
  Age: 91 Year
  Sex: Female

DRUGS (3)
  1. TRACLEER [Suspect]
     Indication: PULMONARY ARTERIAL HYPERTENSION
     Dosage: UNK
     Route: 048
     Dates: end: 20130625
  2. ADCIRCA [Concomitant]
  3. COUMADIN [Concomitant]

REACTIONS (4)
  - Death [Fatal]
  - Gallbladder disorder [Unknown]
  - Fluid retention [Unknown]
  - Dyspnoea [Unknown]
